FAERS Safety Report 8098255-8 (Version None)
Quarter: 2012Q1

REPORT INFORMATION
  Report Type: 
  Country: None (occurrence: None)
  Receive Date: 20120128
  Receipt Date: 20110805
  Transmission Date: 20120608
  Serious: No
  Sender: FDA-Public Use
  Company Number: US-ABBOTT-11P-163-0844561-00

PATIENT
  Age: 64 Year
  Sex: Female

DRUGS (3)
  1. TRAMADOL HCL [Concomitant]
     Indication: PAIN
     Route: 048
  2. HUMIRA [Suspect]
     Indication: PSORIATIC ARTHROPATHY
     Dates: start: 20110601
  3. NAPROXEN [Concomitant]
     Indication: PAIN
     Route: 048

REACTIONS (7)
  - GAIT DISTURBANCE [None]
  - OEDEMA PERIPHERAL [None]
  - HYPOKINESIA [None]
  - ARTHRALGIA [None]
  - RASH [None]
  - NEPHROLITHIASIS [None]
  - PRURITUS [None]
